FAERS Safety Report 9054207 (Version 2)
Quarter: 2013Q1

REPORT INFORMATION
  Report Type: Report from Study
  Country: DE (occurrence: DE)
  Receive Date: 20130208
  Receipt Date: 20130226
  Transmission Date: 20140127
  Serious: Yes (Hospitalization)
  Sender: FDA-Public Use
  Company Number: DE-ROCHE-1186915

PATIENT
  Age: 41 Year
  Sex: Male
  Weight: 79 kg

DRUGS (1)
  1. TOCILIZUMAB [Suspect]
     Indication: RHEUMATOID ARTHRITIS
     Route: 042
     Dates: start: 20110221, end: 20120730

REACTIONS (5)
  - Syncope [Recovered/Resolved]
  - Rhabdomyolysis [Recovered/Resolved]
  - Viral myositis [Recovered/Resolved]
  - Juvenile idiopathic arthritis [Recovered/Resolved]
  - Raynaud^s phenomenon [Recovered/Resolved with Sequelae]
